FAERS Safety Report 8359155-9 (Version None)
Quarter: 2012Q2

REPORT INFORMATION
  Report Type: 
  Country: None (occurrence: None)
  Receive Date: 20120515
  Receipt Date: 20120504
  Transmission Date: 20120825
  Serious: Yes (Other)
  Sender: FDA-Public Use
  Company Number: FR-BRISTOL-MYERS SQUIBB COMPANY-16586893

PATIENT
  Age: 55 Year
  Sex: Male

DRUGS (4)
  1. CETUXIMAB [Suspect]
     Indication: HEAD AND NECK CANCER
     Dosage: LAST DOSE:01DEC2010
     Dates: start: 20101013
  2. DOCETAXEL [Suspect]
     Indication: HEAD AND NECK CANCER
     Dosage: LAST DOSE:24AUG2010.1/CYCLE.
     Dates: start: 20100712
  3. CISPLATIN [Suspect]
     Indication: HEAD AND NECK CANCER
     Dosage: LAST DOSE:24AUG10. 1/CYCLE.
     Dates: start: 20100712
  4. FLUOROURACIL [Suspect]
     Indication: HEAD AND NECK CANCER
     Dosage: LAST DOSE:28AUG10.5/CYCLE.
     Dates: start: 20100712

REACTIONS (2)
  - MUCOSAL INFLAMMATION [None]
  - APHAGIA [None]
